FAERS Safety Report 24855116 (Version 3)
Quarter: 2025Q2

REPORT INFORMATION
  Report Type: Spontaneous
  Country: JP (occurrence: JP)
  Receive Date: 20250117
  Receipt Date: 20250409
  Transmission Date: 20250716
  Serious: Yes (Hospitalization, Other)
  Sender: ALEXION PHARMACEUTICALS
  Company Number: JP-ASTRAZENECA-250004499_011620_P_1

PATIENT
  Age: 72 Year
  Weight: 36 kg

DRUGS (4)
  1. LYNPARZA [Suspect]
     Active Substance: OLAPARIB
     Indication: Ovarian cancer
     Dosage: 300 MILLIGRAM, BID
  2. LYNPARZA [Suspect]
     Active Substance: OLAPARIB
     Dosage: 300 MILLIGRAM, BID
  3. BEVACIZUMAB [Suspect]
     Active Substance: BEVACIZUMAB
     Indication: Ovarian cancer
     Dosage: 560 MILLIGRAM, Q3W
  4. ELIQUIS [Concomitant]
     Active Substance: APIXABAN
     Indication: Pulmonary thrombosis
     Dosage: 5 MILLIGRAM, BID PERORAL MEDICINE

REACTIONS (2)
  - Interstitial lung disease [Recovering/Resolving]
  - Ileus [Recovering/Resolving]
